FAERS Safety Report 7770302 (Version 2)
Quarter: 2014Q1

REPORT INFORMATION
  Report Type: Spontaneous
  Country: US (occurrence: US)
  Receive Date: 20110122
  Receipt Date: 20140323
  Transmission Date: 20141002
  Serious: No
  Sender: FDA-Public Use
  Company Number: US-ALLERGAN-1016680US

PATIENT
  Age: 30 Year
  Sex: Female

DRUGS (5)
  1. LATISSE 0.03% [Suspect]
     Indication: HYPOTRICHOSIS
     Dosage: UNK
  2. LATISSE 0.03% [Suspect]
     Dosage: 1 GTT, QHS
     Route: 061
     Dates: start: 201003
  3. LATISSE 0.03% [Suspect]
     Dosage: UNK
     Dates: start: 201011
  4. LATISSE 0.03% [Suspect]
     Dosage: UNK
     Dates: start: 201012
  5. LATISSE 0.03% [Suspect]
     Dosage: UNK

REACTIONS (3)
  - Wrong technique in drug usage process [Unknown]
  - Wrong technique in drug usage process [Unknown]
  - Drug ineffective [Unknown]
